FAERS Safety Report 22532879 (Version 1)
Quarter: 2023Q2

REPORT INFORMATION
  Report Type: Spontaneous
  Country: HU (occurrence: HU)
  Receive Date: 20230607
  Receipt Date: 20230607
  Transmission Date: 20230721
  Serious: Yes (Other)
  Sender: FDA-Public Use
  Company Number: HU-002147023-PHHY2019HU158724

PATIENT
  Age: 39 Year
  Sex: Male
  Weight: 98 kg

DRUGS (16)
  1. NEBIVOLOL [Suspect]
     Active Substance: NEBIVOLOL
     Indication: Hypertension
     Dosage: 5 MG, QD (IN THE EVENING)
     Route: 065
  2. VALSARTAN [Suspect]
     Active Substance: VALSARTAN
     Indication: Hypertension
     Dosage: 80 MG, QD (IN THE EVENING)
     Route: 048
  3. VALSARTAN [Suspect]
     Active Substance: VALSARTAN
     Dosage: 160 MG, QD (IN THE EVENING)
     Route: 048
  4. CARVEDILOL [Suspect]
     Active Substance: CARVEDILOL
     Indication: Hypertension
     Dosage: 12.5 MG, QD
     Route: 048
  5. CARVEDILOL [Suspect]
     Active Substance: CARVEDILOL
     Dosage: 18.75 MG, QD (IN THE EVENING)
     Route: 048
  6. CARVEDILOL [Suspect]
     Active Substance: CARVEDILOL
     Dosage: 12.5 MG, BID (IN THE MORNING AND EVENING)
     Route: 048
  7. CARVEDILOL [Suspect]
     Active Substance: CARVEDILOL
     Dosage: 37.5 MG, QD
     Route: 048
  8. CARVEDILOL [Suspect]
     Active Substance: CARVEDILOL
     Dosage: 25 MG, QD
     Route: 048
  9. PROPRANOLOL [Suspect]
     Active Substance: PROPRANOLOL HYDROCHLORIDE
     Indication: Graves^ disease
     Dosage: 20 MG, UNK
     Route: 065
  10. PROPRANOLOL [Suspect]
     Active Substance: PROPRANOLOL HYDROCHLORIDE
     Indication: Blood pressure increased
     Dosage: 40 MG, QD (20 YEARS AT A DOSE OF 20 MG TWICE DAILY)
     Route: 048
  11. PROPRANOLOL [Suspect]
     Active Substance: PROPRANOLOL HYDROCHLORIDE
     Indication: Essential tremor
     Dosage: 80 MG, QD
     Route: 048
  12. PROPRANOLOL [Suspect]
     Active Substance: PROPRANOLOL HYDROCHLORIDE
     Dosage: 120 MG, QD
     Route: 048
  13. PROPRANOLOL [Suspect]
     Active Substance: PROPRANOLOL HYDROCHLORIDE
     Dosage: TO 2 TO 3 X 40 MG
     Route: 065
  14. CAPTOPRIL [Suspect]
     Active Substance: CAPTOPRIL
     Indication: Blood pressure increased
     Route: 065
  15. METHIMAZOLE [Concomitant]
     Active Substance: METHIMAZOLE
     Indication: Essential tremor
     Dosage: DOSE OF HALF A TABLET,FOLLOWED BY A QUARTER OF A TABLET
     Route: 065
  16. METHIMAZOLE [Concomitant]
     Active Substance: METHIMAZOLE
     Indication: Graves^ disease

REACTIONS (13)
  - Left ventricular hypertrophy [Unknown]
  - Hepatic steatosis [Unknown]
  - Heart rate increased [Recovered/Resolved]
  - Sexual dysfunction [Recovered/Resolved]
  - Diastolic dysfunction [Unknown]
  - Non-dipping [Recovered/Resolved]
  - Erectile dysfunction [Recovered/Resolved]
  - Hypersensitivity [Unknown]
  - Heart rate decreased [Recovered/Resolved]
  - Persistent depressive disorder [Unknown]
  - Rash [Unknown]
  - Nephropathy [Recovering/Resolving]
  - Lethargy [Recovering/Resolving]
